FAERS Safety Report 16581394 (Version 2)
Quarter: 2019Q3

REPORT INFORMATION
  Report Type: Report from Study
  Country: CO (occurrence: CO)
  Receive Date: 20190716
  Receipt Date: 20190724
  Transmission Date: 20191004
  Serious: Yes (Hospitalization)
  Sender: FDA-Public Use
  Company Number: CO-INCYTE CORPORATION-2019IN006890

PATIENT

DRUGS (2)
  1. NEOSALDINA [Concomitant]
     Active Substance: CAFFEINE\ISOMETHEPTENE\METHIMAZOLE
     Indication: MIGRAINE
     Dosage: 30 MG, ACCORDING TO THE NEED
     Route: 048
  2. JAKAVI [Suspect]
     Active Substance: RUXOLITINIB
     Indication: MYELOFIBROSIS
     Dosage: 40 MG, QD
     Route: 048
     Dates: start: 20190614

REACTIONS (6)
  - Platelet count increased [Recovering/Resolving]
  - Jugular vein thrombosis [Recovering/Resolving]
  - Inappropriate schedule of product administration [Unknown]
  - Somnolence [Unknown]
  - Neck pain [Recovering/Resolving]
  - Dizziness [Unknown]

NARRATIVE: CASE EVENT DATE: 20190614
